FAERS Safety Report 15896232 (Version 1)
Quarter: 2019Q1

REPORT INFORMATION
  Report Type: Spontaneous
  Country: FR (occurrence: FR)
  Receive Date: 20190131
  Receipt Date: 20190131
  Transmission Date: 20190417
  Serious: Yes (Hospitalization)
  Sender: FDA-Public Use
  Company Number: FR-AMGEN-FRASP2019012815

PATIENT
  Age: 50 Year
  Sex: Male

DRUGS (6)
  1. SKENAN [Concomitant]
     Active Substance: MORPHINE SULFATE
     Dosage: 100 MG, UNK
  2. MOVICOL [Concomitant]
     Active Substance: POLYETHYLENE GLYCOL 3350\POTASSIUM CHLORIDE\SODIUM BICARBONATE\SODIUM CHLORIDE
     Dosage: UNK
  3. ASPIRINE PROTECT [Concomitant]
     Active Substance: ASPIRIN
     Dosage: 100 MG, UNK
  4. KEYTRUDA [Concomitant]
     Active Substance: PEMBROLIZUMAB
     Dosage: 50 MG, UNK
  5. XGEVA [Suspect]
     Active Substance: DENOSUMAB
     Indication: METASTASES TO BONE
     Dosage: 1 DF, QMO
     Route: 058
     Dates: end: 201811
  6. CACIT VITAMINE D3 [Concomitant]
     Active Substance: CALCIUM CARBONATE\CHOLECALCIFEROL
     Dosage: UNK

REACTIONS (2)
  - Bone lesion [Not Recovered/Not Resolved]
  - Intervertebral discitis [Recovering/Resolving]

NARRATIVE: CASE EVENT DATE: 201808
